FAERS Safety Report 8779518 (Version 3)
Quarter: 2012Q4

REPORT INFORMATION
  Report Type: 
  Country: US (occurrence: US)
  Receive Date: 20120912
  Receipt Date: 20120921
  Transmission Date: 20130627
  Serious: Yes (Death)
  Sender: FDA-Public Use
  Company Number: US-PFIZER INC-2012223908

PATIENT
  Sex: Male

DRUGS (2)
  1. NORVASC [Suspect]
     Dosage: UNK
     Dates: start: 20110501
  2. PROTONIX [Suspect]
     Dosage: UNK
     Dates: start: 20110501

REACTIONS (1)
  - Death [Fatal]
